FAERS Safety Report 12109086 (Version 1)
Quarter: 2016Q1

REPORT INFORMATION
  Report Type: Spontaneous
  Country: US (occurrence: None)
  Receive Date: 20160222
  Receipt Date: 20160222
  Transmission Date: 20160526
  Serious: Yes (Hospitalization)
  Sender: FDA-Public Use
  Company Number: None

PATIENT
  Age: 83 Year
  Sex: Male

DRUGS (1)
  1. SENSIPAR [Suspect]
     Active Substance: CINACALCET HYDROCHLORIDE
     Indication: HYPOPARATHYROIDISM SECONDARY
     Route: 048
     Dates: start: 20141118

REACTIONS (4)
  - Laboratory test abnormal [None]
  - Dysphagia [None]
  - Blood calcium increased [None]
  - Fall [None]

NARRATIVE: CASE EVENT DATE: 20160211
